FAERS Safety Report 7678223-8 (Version None)
Quarter: 2011Q3

REPORT INFORMATION
  Report Type: 
  Country: None (occurrence: None)
  Receive Date: 20110811
  Receipt Date: 20100809
  Transmission Date: 20111222
  Serious: No
  Sender: FDA-Public Use
  Company Number: US-MUTUAL PHARMACEUTICAL COMPANY, INC.-2010P1000765

PATIENT
  Sex: Female
  Weight: 43.09 kg

DRUGS (7)
  1. DOXYCYCLINE HYCLATE [Suspect]
     Route: 048
     Dates: start: 20100808, end: 20100809
  2. DOXYCYCLINE HYCLATE [Suspect]
     Route: 048
     Dates: start: 20100401
  3. YAZ [Concomitant]
  4. PROBIOTICS [Concomitant]
  5. DOXYCYCLINE HYCLATE [Suspect]
     Route: 048
     Dates: start: 20100801, end: 20100808
  6. EUTHENIX [Concomitant]
  7. CLARITIN [Concomitant]

REACTIONS (12)
  - ABDOMINAL DISTENSION [None]
  - VOMITING [None]
  - CHILLS [None]
  - PYREXIA [None]
  - PALLOR [None]
  - FATIGUE [None]
  - HYPERSENSITIVITY [None]
  - ABDOMINAL PAIN UPPER [None]
  - CONSTIPATION [None]
  - NAUSEA [None]
  - HYPERHIDROSIS [None]
  - OROPHARYNGEAL PAIN [None]
